FAERS Safety Report 14616427 (Version 2)
Quarter: 2020Q4

REPORT INFORMATION
  Report Type: Report from Study
  Country: US (occurrence: US)
  Receive Date: 20180309
  Receipt Date: 20201121
  Transmission Date: 20210113
  Serious: No
  Sender: FDA-Public Use
  Company Number: PHEH2018US009351

PATIENT
  Sex: Female

DRUGS (1)
  1. ILARIS [Suspect]
     Active Substance: CANAKINUMAB
     Indication: STILL^S DISEASE
     Dosage: 128 MG, EVERY 4 WEEKS
     Route: 058
     Dates: start: 20170727

REACTIONS (2)
  - Fatigue [Unknown]
  - Influenza [Unknown]
